FAERS Safety Report 9330075 (Version 1)
Quarter: 2013Q2

REPORT INFORMATION
  Report Type: Spontaneous
  Country: US (occurrence: US)
  Receive Date: 20130604
  Receipt Date: 20130604
  Transmission Date: 20140414
  Serious: No
  Sender: FDA-Public Use
  Company Number: US-ASTRAZENECA-2013SE36581

PATIENT
  Age: 8 Year
  Sex: Male
  Weight: 36.3 kg

DRUGS (3)
  1. SYMBICORT [Suspect]
     Indication: ASTHMA
     Dosage: 80/4.5 MCG, DAILY
     Route: 055
     Dates: start: 2011
  2. SYMBICORT [Suspect]
     Indication: MULTIPLE ALLERGIES
     Dosage: 80/4.5 MCG, DAILY
     Route: 055
     Dates: start: 2011
  3. ALLEGRA [Concomitant]
     Indication: MULTIPLE ALLERGIES
     Dosage: 1.5 TO 2 TSP DAILY
     Route: 048

REACTIONS (3)
  - Cough [Not Recovered/Not Resolved]
  - Intentional drug misuse [Unknown]
  - Drug dose omission [Unknown]
